FAERS Safety Report 5171315-7 (Version None)
Quarter: 2006Q4

REPORT INFORMATION
  Report Type: 
  Country: None (occurrence: None)
  Receive Date: 20061208
  Receipt Date: 20061208
  Transmission Date: 20070319
  Serious: No
  Sender: FDA-Public Use
  Company Number: None

PATIENT
  Sex: Female
  Weight: 61.2356 kg

DRUGS (1)
  1. MOVE FREE ADVANCED - SCHIFF [Suspect]
     Dates: start: 20060510, end: 20060615

REACTIONS (1)
  - DIARRHOEA [None]
